FAERS Safety Report 10416133 (Version 1)
Quarter: 2014Q3

REPORT INFORMATION
  Report Type: Spontaneous
  Country: US (occurrence: None)
  Receive Date: 20140827
  Receipt Date: 20140827
  Transmission Date: 20150326
  Serious: Yes (Life-Threatening, Hospitalization, Disabling, Other)
  Sender: FDA-Public Use
  Company Number: None

PATIENT
  Age: 27 Year
  Sex: Male
  Weight: 79.38 kg

DRUGS (1)
  1. ACCUTANE [Suspect]
     Active Substance: ISOTRETINOIN
     Indication: ACNE
     Dosage: 1 PILL ONCE DAILY TAKEN BY MOUTH
     Route: 048
     Dates: start: 20091231, end: 20100630

REACTIONS (14)
  - Weight decreased [None]
  - Polyuria [None]
  - Acne [None]
  - Arthritis [None]
  - Breath odour [None]
  - Anxiety [None]
  - Libido decreased [None]
  - Alopecia [None]
  - Disturbance in attention [None]
  - Arthropathy [None]
  - Feeling abnormal [None]
  - Blood glucose increased [None]
  - Erectile dysfunction [None]
  - Depressed mood [None]

NARRATIVE: CASE EVENT DATE: 20110218
